FAERS Safety Report 19964452 (Version 6)
Quarter: 2022Q3

REPORT INFORMATION
  Report Type: Spontaneous
  Country: JP (occurrence: JP)
  Receive Date: 20211018
  Receipt Date: 20220805
  Transmission Date: 20221027
  Serious: Yes (Hospitalization, Disabling, Other)
  Sender: FDA-Public Use
  Company Number: JP-KYOWAKIRIN-2021AKK016910

PATIENT
  Age: 74 Year
  Sex: Female

DRUGS (22)
  1. PEGFILGRASTIM [Suspect]
     Active Substance: PEGFILGRASTIM
     Indication: Colony stimulating factor therapy
     Dosage: UNK
     Route: 065
  2. DOXIL [Concomitant]
     Active Substance: DOXORUBICIN HYDROCHLORIDE
     Indication: Ovarian cancer recurrent
     Dosage: 48 MG, QD (1ST COURSE)
     Route: 041
     Dates: start: 20210817, end: 20210817
  3. DOXIL [Concomitant]
     Active Substance: DOXORUBICIN HYDROCHLORIDE
     Dosage: 48 MILLIGRAM, QD
     Route: 041
     Dates: start: 20210924, end: 20210924
  4. CARBOPLATIN [Concomitant]
     Active Substance: CARBOPLATIN
     Indication: Ovarian cancer recurrent
     Dosage: 420 MG, QD (2ND COURSE)
     Route: 041
     Dates: start: 20210924, end: 20210924
  5. CARBOPLATIN [Concomitant]
     Active Substance: CARBOPLATIN
     Dosage: 420 MG, QD (1ST COURSE)
     Route: 041
     Dates: start: 20210817, end: 20210817
  6. DEXAMETHASONE SODIUM PHOSPHATE [Concomitant]
     Active Substance: DEXAMETHASONE SODIUM PHOSPHATE
     Indication: Prophylaxis of nausea and vomiting
     Dosage: 6.6 MILLIGRAM, QD
     Route: 041
     Dates: start: 20210817, end: 20210817
  7. DEXAMETHASONE SODIUM PHOSPHATE [Concomitant]
     Active Substance: DEXAMETHASONE SODIUM PHOSPHATE
     Indication: Prophylaxis of nausea and vomiting
     Dosage: 6.6 MILLIGRAM, QD
     Route: 041
     Dates: start: 20210924, end: 20210924
  8. ALOXI [Concomitant]
     Active Substance: PALONOSETRON HYDROCHLORIDE
     Indication: Prophylaxis of nausea and vomiting
     Dosage: 0.75 MG, QD
     Route: 041
     Dates: start: 20210817, end: 20210817
  9. ALOXI [Concomitant]
     Active Substance: PALONOSETRON HYDROCHLORIDE
     Indication: Prophylaxis of nausea and vomiting
     Dosage: 0.75 MG, QD
     Route: 041
     Dates: start: 20210924, end: 20210924
  10. BIO-THREE [Concomitant]
     Active Substance: HERBALS
     Indication: Dysbiosis
     Dosage: 1 DOSAGE FORM, TID
     Route: 048
     Dates: start: 20210924
  11. LANSOPRAZOLE [Concomitant]
     Active Substance: LANSOPRAZOLE
     Indication: Gastric ulcer
     Dosage: 30 MILLIGRAM, QD
     Route: 048
     Dates: start: 20210924
  12. AMLODIPINE BESYLATE [Concomitant]
     Active Substance: AMLODIPINE BESYLATE
     Indication: Hypertension
     Dosage: 2.5 MILLIGRAM, QD
     Route: 048
     Dates: start: 20210924
  13. MAGNESIUM OXIDE [Concomitant]
     Active Substance: MAGNESIUM OXIDE
     Indication: Constipation
     Dosage: 250 MILLIGRAM, TID
     Route: 048
     Dates: start: 20210924
  14. SENNOSIDES A AND B [Concomitant]
     Active Substance: SENNOSIDES A AND B
     Indication: Constipation
     Dosage: 24 MILLIGRAM, QD
     Route: 048
     Dates: start: 20210924
  15. GLUTATHIONE [Concomitant]
     Active Substance: GLUTATHIONE
     Indication: Hepatic function abnormal
     Dosage: 100 MILLIGRAM, TID
     Route: 048
     Dates: start: 20210924
  16. HERBALS [Concomitant]
     Active Substance: HERBALS
     Indication: Neuropathy peripheral
     Dosage: 2.5 GRAM, TID
     Route: 048
     Dates: start: 20210924
  17. URSO [Concomitant]
     Active Substance: URSODIOL
     Indication: Hepatic function abnormal
     Dosage: 50 MILLIGRAM, TID
     Route: 048
     Dates: start: 20210924
  18. MIROGABALIN BESYLATE [Concomitant]
     Active Substance: MIROGABALIN BESYLATE
     Indication: Neuropathy peripheral
     Dosage: 5 MILLIGRAM, BID
     Route: 048
     Dates: start: 20210924
  19. APREPITANT [Concomitant]
     Active Substance: APREPITANT
     Indication: Prophylaxis of nausea and vomiting
     Dosage: 80 MILLIGRAM, QD
     Route: 048
     Dates: start: 20210925, end: 20210926
  20. APREPITANT [Concomitant]
     Active Substance: APREPITANT
     Dosage: 205 MILLIGRAM
     Route: 048
     Dates: start: 20210817, end: 20210817
  21. APREPITANT [Concomitant]
     Active Substance: APREPITANT
     Dosage: 125 MILLIGRAM, QD
     Route: 048
     Dates: start: 20210924, end: 20210924
  22. LOXOPROFEN SODIUM [Concomitant]
     Active Substance: LOXOPROFEN SODIUM
     Indication: Pain in extremity
     Dosage: 60 MILLIGRAM, TID
     Route: 048
     Dates: start: 20210924

REACTIONS (1)
  - Giant cell arteritis [Recovered/Resolved with Sequelae]

NARRATIVE: CASE EVENT DATE: 20210927
